FAERS Safety Report 6504340-1 (Version None)
Quarter: 2009Q4

REPORT INFORMATION
  Report Type: 
  Country: None (occurrence: None)
  Receive Date: 20091215
  Receipt Date: 20091130
  Transmission Date: 20100525
  Serious: Yes (Hospitalization)
  Sender: FDA-Public Use
  Company Number: AUR-APL-2009-01542

PATIENT
  Age: 67 Year
  Sex: Female
  Weight: 50 kg

DRUGS (8)
  1. RISPERIDONE [Suspect]
     Dosage: 2MG - UNK - ORAL
     Route: 048
     Dates: end: 20090917
  2. ALDALIX HARD CAPSULE [Suspect]
     Dosage: 1 - DAILY- ORAL
     Route: 048
     Dates: end: 20090917
  3. TRAMADOL HYDROCHLORIDE AND ACETAMINOPHEN [Suspect]
     Indication: BACK PAIN
     Dosage: 3X/DAY -ORAL
     Route: 048
     Dates: start: 20090801, end: 20090917
  4. KESTINE 10MG COATED TABLET [Concomitant]
     Dosage: 1 TABLET-ORAL
     Route: 048
     Dates: end: 20090917
  5. TAREG 160MG FILM-COATED TABLET [Suspect]
     Dosage: 1 TABLET-DAILY-ORAL
     Route: 048
     Dates: end: 20090917
  6. TENORMIN [Concomitant]
  7. SIMVASTATIN [Concomitant]
  8. BIPROFENID [Concomitant]

REACTIONS (4)
  - AZOTAEMIA [None]
  - BLOOD CREATINE INCREASED [None]
  - HALLUCINATIONS, MIXED [None]
  - HYPERKALAEMIA [None]
